FAERS Safety Report 9783968 (Version 2)
Quarter: 2014Q1

REPORT INFORMATION
  Report Type: Spontaneous
  Country: FR (occurrence: FR)
  Receive Date: 20131226
  Receipt Date: 20140310
  Transmission Date: 20141002
  Serious: Yes (Other)
  Sender: FDA-Public Use
  Company Number: FR-PFIZER INC-2013364472

PATIENT
  Age: 41 Year
  Sex: Female

DRUGS (5)
  1. SOLU-MEDROL [Suspect]
     Dosage: 1240 MG, DAILY
     Route: 040
     Dates: start: 20130908, end: 20130910
  2. SOLUPRED [Suspect]
     Dosage: 60 MG, DAILY
     Route: 048
     Dates: start: 20130911
  3. SOLUPRED [Suspect]
     Dosage: 40 MG, DAILY
     Route: 048
  4. SOLUPRED [Suspect]
     Dosage: 20 MG, DAILY
     Route: 048
  5. LUTENYL [Concomitant]
     Dosage: UNK

REACTIONS (2)
  - Joint swelling [Recovering/Resolving]
  - Bone disorder [Recovering/Resolving]
